FAERS Safety Report 6291311-6 (Version None)
Quarter: 2009Q3

REPORT INFORMATION
  Report Type: 
  Country: None (occurrence: None)
  Receive Date: 20090730
  Receipt Date: 20090721
  Transmission Date: 20100115
  Serious: Yes (Hospitalization)
  Sender: FDA-Public Use
  Company Number: IN-MERCK-0907USA03862

PATIENT
  Age: 46 Year
  Sex: Male

DRUGS (7)
  1. SINGULAIR [Suspect]
     Indication: ASTHMA
     Route: 048
  2. ALBUTEROL [Concomitant]
     Indication: ASTHMA
  3. ALBUTEROL [Concomitant]
  4. FLUTICASONE [Concomitant]
     Indication: ASTHMA
     Route: 065
  5. ALBUTEROL [Concomitant]
  6. BUDESONIDE [Concomitant]
     Route: 065
  7. FORMOTEROL FUMARATE [Concomitant]
     Route: 065

REACTIONS (1)
  - LIVER DISORDER [None]
